FAERS Safety Report 14599804 (Version 2)
Quarter: 2018Q2

REPORT INFORMATION
  Report Type: Report from Study
  Country: US (occurrence: US)
  Receive Date: 20180305
  Receipt Date: 20180614
  Transmission Date: 20180711
  Serious: No
  Sender: FDA-Public Use
  Company Number: PHEH2018US008723

PATIENT
  Sex: Male

DRUGS (1)
  1. COSENTYX [Suspect]
     Active Substance: SECUKINUMAB
     Indication: PSORIATIC ARTHROPATHY
     Dosage: 300 MG, QMO
     Route: 058

REACTIONS (7)
  - Therapeutic response decreased [Unknown]
  - Lethargy [Unknown]
  - Psoriasis [Unknown]
  - Dry skin [Unknown]
  - Pain [Unknown]
  - Depression [Unknown]
  - Pain in extremity [Unknown]
